FAERS Safety Report 9890077 (Version 1)
Quarter: 2014Q1

REPORT INFORMATION
  Report Type: Spontaneous
  Country: US (occurrence: US)
  Receive Date: 20140212
  Receipt Date: 20140212
  Transmission Date: 20141002
  Serious: No
  Sender: FDA-Public Use
  Company Number: US-BIOGENIDEC-2014BI011094

PATIENT
  Age: 59 Year
  Sex: Female

DRUGS (10)
  1. TECFIDERA [Suspect]
     Indication: MULTIPLE SCLEROSIS
     Route: 048
  2. ALLEGRA [Concomitant]
  3. ASPIRIN CHILDRENS [Concomitant]
  4. BACLOFEN [Concomitant]
  5. DEXTROAMPHETAMINE SULFATE [Concomitant]
  6. LEVAQUIN [Concomitant]
  7. LEVOTHYROXINE SODIUM [Concomitant]
  8. LIPITOR [Concomitant]
  9. NEXIUM [Concomitant]
  10. PREMPRO [Concomitant]

REACTIONS (1)
  - Influenza [Unknown]
